FAERS Safety Report 6088446-X (Version None)
Quarter: 2009Q1

REPORT INFORMATION
  Report Type: 
  Country: None (occurrence: None)
  Receive Date: 20090224
  Receipt Date: 20090212
  Transmission Date: 20090719
  Serious: Yes (Hospitalization)
  Sender: FDA-Public Use
  Company Number: SE-PFIZER INC-2009169781

PATIENT

DRUGS (1)
  1. SUNITINIB MALATE [Suspect]
     Indication: RENAL CANCER METASTATIC

REACTIONS (3)
  - INFECTED SKIN ULCER [None]
  - LEG AMPUTATION [None]
  - SKIN ULCER [None]
